FAERS Safety Report 5413603-2 (Version None)
Quarter: 2007Q3

REPORT INFORMATION
  Report Type: 
  Country: None (occurrence: None)
  Receive Date: 20070814
  Receipt Date: 20060721
  Transmission Date: 20080115
  Serious: Yes (Other)
  Sender: FDA-Public Use
  Company Number: US-BRISTOL-MYERS SQUIBB COMPANY-13450416

PATIENT
  Age: 57 Year
  Sex: Male
  Weight: 78 kg

DRUGS (7)
  1. AVAPRO [Suspect]
     Indication: HYPERTENSION
  2. GLUCOVANCE [Suspect]
     Indication: TYPE 2 DIABETES MELLITUS
  3. ADVICOR [Concomitant]
     Dosage: DOSAGE FORM = 500MG/20MG
  4. NEURONTIN [Concomitant]
  5. AVANDIA [Concomitant]
  6. EQUATE [Concomitant]
  7. VITAMIN [Concomitant]

REACTIONS (2)
  - BLOOD GLUCOSE FLUCTUATION [None]
  - FATIGUE [None]
